FAERS Safety Report 9519571 (Version 1)
Quarter: 2013Q3

REPORT INFORMATION
  Report Type: Spontaneous
  Country: GB (occurrence: GB)
  Receive Date: 20130912
  Receipt Date: 20130912
  Transmission Date: 20140515
  Serious: Yes (Hospitalization)
  Sender: FDA-Public Use
  Company Number: PHHY2013GB098097

PATIENT
  Age: 84 Year
  Sex: Female

DRUGS (5)
  1. ALENDRONIC ACID [Suspect]
     Dosage: 70 MG, PER WEEK
  2. GLUCOSAMINE [Concomitant]
  3. LEVOTHYROXINE SODIUM [Concomitant]
  4. WARFARIN [Concomitant]
  5. DIGOXIN [Concomitant]

REACTIONS (6)
  - Respiratory failure [Recovered/Resolved]
  - Oesophageal rupture [Recovered/Resolved]
  - Abdominal pain upper [Recovered/Resolved]
  - Pleural effusion [Recovered/Resolved]
  - Tachypnoea [Recovered/Resolved]
  - Oesophageal perforation [Recovered/Resolved]
